FAERS Safety Report 13140613 (Version 1)
Quarter: 2017Q1

REPORT INFORMATION
  Report Type: Spontaneous
  Country: US (occurrence: US)
  Receive Date: 20170123
  Receipt Date: 20170123
  Transmission Date: 20170428
  Serious: No
  Sender: FDA-Public Use
  Company Number: US-UNITED THERAPEUTICS-UNT-2016-014305

PATIENT
  Age: 54 Year
  Sex: Female
  Weight: 96.15 kg

DRUGS (4)
  1. LETAIRIS [Suspect]
     Active Substance: AMBRISENTAN
     Indication: PULMONARY HYPERTENSION
     Dosage: 5 MG, QD
     Route: 065
     Dates: start: 20141230
  2. ADCIRCA [Concomitant]
     Active Substance: TADALAFIL
     Indication: PRODUCT USED FOR UNKNOWN INDICATION
  3. LETAIRIS [Suspect]
     Active Substance: AMBRISENTAN
     Indication: CONNECTIVE TISSUE DISORDER
     Dosage: 10 MG, QD
     Route: 065
  4. REMODULIN [Suspect]
     Active Substance: TREPROSTINIL
     Indication: PULMONARY HYPERTENSION
     Dosage: 0.034 ?G/KG, CONTINUING
     Route: 058
     Dates: start: 20150114

REACTIONS (5)
  - Contusion [Unknown]
  - Diarrhoea [Unknown]
  - Balance disorder [Unknown]
  - Fall [Recovered/Resolved]
  - Infusion site infection [Unknown]

NARRATIVE: CASE EVENT DATE: 201605
